FAERS Safety Report 9364018 (Version 2)
Quarter: 2013Q3

REPORT INFORMATION
  Report Type: Spontaneous
  Country: FR (occurrence: None)
  Receive Date: 20130620
  Receipt Date: 20130814
  Transmission Date: 20140515
  Serious: Yes (Hospitalization)
  Sender: FDA-Public Use
  Company Number: 7217846

PATIENT
  Age: 31 Year
  Sex: Female

DRUGS (2)
  1. THYROZOL [Suspect]
     Indication: BASEDOW^S DISEASE
     Dosage: 1 DF ( 1 DF, 1 D)
     Route: 048
     Dates: start: 20130420
  2. LEVOTHYROX [Suspect]
     Indication: BASEDOW^S DISEASE
     Dosage: 50 MCG (1 DF, 1 D)
     Route: 048
     Dates: start: 20130427

REACTIONS (2)
  - Agranulocytosis [None]
  - Hyperthermia [None]
